FAERS Safety Report 18245757 (Version 2)
Quarter: 2020Q3

REPORT INFORMATION
  Report Type: Spontaneous
  Country: US (occurrence: US)
  Receive Date: 20200909
  Receipt Date: 20200909
  Transmission Date: 20201103
  Serious: Yes (Hospitalization, Other)
  Sender: FDA-Public Use
  Company Number: US-BION-008999

PATIENT
  Age: 36 Year
  Sex: Male

DRUGS (1)
  1. LOPERAMIDE UNKNOWN PRODUCT [Suspect]
     Active Substance: LOPERAMIDE
     Dosage: MULTIPLE BOTTLES OF LOPERAMIDE

REACTIONS (2)
  - Ventricular tachycardia [Unknown]
  - Overdose [Unknown]
